FAERS Safety Report 14014599 (Version 3)
Quarter: 2017Q4

REPORT INFORMATION
  Report Type: Report from Study
  Country: US (occurrence: US)
  Receive Date: 20170927
  Receipt Date: 20171114
  Transmission Date: 20180321
  Serious: No
  Sender: FDA-Public Use
  Company Number: PHEH2017US031027

PATIENT
  Age: 19 Year
  Sex: Male

DRUGS (1)
  1. COSENTYX [Suspect]
     Active Substance: SECUKINUMAB
     Indication: PSORIASIS
     Dosage: 300 MG, QMO
     Route: 065
     Dates: start: 20161117

REACTIONS (4)
  - Inappropriate schedule of drug administration [Unknown]
  - Injection site bruising [Unknown]
  - Psoriasis [Unknown]
  - Needle issue [Unknown]

NARRATIVE: CASE EVENT DATE: 20161117
